FAERS Safety Report 7179405-4 (Version None)
Quarter: 2010Q4

REPORT INFORMATION
  Report Type: 
  Country: None (occurrence: None)
  Receive Date: 20101221
  Receipt Date: 20101213
  Transmission Date: 20110411
  Serious: Yes (Other)
  Sender: FDA-Public Use
  Company Number: US-US-EMD SERONO, INC.-7025297

PATIENT
  Sex: Male
  Weight: 121 kg

DRUGS (13)
  1. REBIF [Suspect]
     Indication: MULTIPLE SCLEROSIS
     Route: 058
     Dates: start: 20100408, end: 20101001
  2. FLEXERIL [Concomitant]
     Indication: MUSCLE SPASMS
     Dates: end: 20100101
  3. LEXAPRO [Concomitant]
  4. LISINOPRIL [Concomitant]
  5. REQUIP [Concomitant]
  6. CYMBALTA [Concomitant]
  7. ADVAIR [Concomitant]
  8. PROAIR HFA [Concomitant]
  9. NASONEX [Concomitant]
  10. BACLOFEN [Concomitant]
  11. SINGULAIR [Concomitant]
  12. ATENOLOL [Concomitant]
  13. VITAMIN D [Concomitant]

REACTIONS (6)
  - BLOOD GLUCOSE ABNORMAL [None]
  - INSOMNIA [None]
  - MUSCLE SPASMS [None]
  - PAIN IN EXTREMITY [None]
  - SENSATION OF HEAVINESS [None]
  - SPINAL COLUMN STENOSIS [None]
